FAERS Safety Report 20751296 (Version 2)
Quarter: 2022Q2

REPORT INFORMATION
  Report Type: Spontaneous
  Country: JP (occurrence: JP)
  Receive Date: 20220426
  Receipt Date: 20220519
  Transmission Date: 20220721
  Serious: Yes (Hospitalization)
  Sender: FDA-Public Use
  Company Number: JP-TEVA-2022-JP-2030121

PATIENT
  Age: 88 Year
  Sex: Female

DRUGS (1)
  1. PREDNISOLONE [Suspect]
     Active Substance: PREDNISOLONE
     Indication: Chronic inflammatory demyelinating polyradiculoneuropathy
     Dosage: 15 MILLIGRAM DAILY; FOR 21 MONTHS
     Route: 048

REACTIONS (2)
  - Pneumonia cryptococcal [Recovering/Resolving]
  - Cryptococcal cutaneous infection [Recovering/Resolving]
